FAERS Safety Report 12548429 (Version 3)
Quarter: 2016Q4

REPORT INFORMATION
  Report Type: Spontaneous
  Country: US (occurrence: US)
  Receive Date: 20160712
  Receipt Date: 20161013
  Transmission Date: 20170207
  Serious: Yes (Hospitalization, Other)
  Sender: FDA-Public Use
  Company Number: US-AUROBINDO-AUR-APL-2016-08785

PATIENT
  Age: 97 Year
  Sex: Female

DRUGS (4)
  1. METRONIDAZOLE. [Suspect]
     Active Substance: METRONIDAZOLE
     Indication: DIVERTICULITIS
     Dosage: UNK
     Route: 065
  2. LINEZOLID. [Concomitant]
     Active Substance: LINEZOLID
     Indication: URINARY TRACT INFECTION
     Route: 065
  3. CIPROFLOXACIN. [Suspect]
     Active Substance: CIPROFLOXACIN
     Indication: DIVERTICULITIS
     Dosage: UNK
     Route: 065
  4. VANCOMYCIN [Concomitant]
     Active Substance: VANCOMYCIN
     Indication: PRODUCT USED FOR UNKNOWN INDICATION
     Route: 065

REACTIONS (13)
  - Tenderness [Unknown]
  - Condition aggravated [Unknown]
  - Abdominal pain [Unknown]
  - Clostridium difficile colitis [Unknown]
  - Bladder dilatation [Unknown]
  - Dysuria [Unknown]
  - Bandaemia [Unknown]
  - Urinary retention [Unknown]
  - Diarrhoea [Unknown]
  - Enterovesical fistula [Unknown]
  - Burning sensation [Unknown]
  - Anaemia [Unknown]
  - Leukocytosis [Unknown]
